FAERS Safety Report 7349812-5 (Version None)
Quarter: 2011Q1

REPORT INFORMATION
  Report Type: 
  Country: None (occurrence: None)
  Receive Date: 20110314
  Receipt Date: 20110307
  Transmission Date: 20110831
  Serious: Yes (Other)
  Sender: FDA-Public Use
  Company Number: US-ROCHE-628600

PATIENT
  Age: 61 Year
  Sex: Female

DRUGS (10)
  1. CAPECITABINE [Suspect]
     Route: 065
     Dates: start: 20070501
  2. NAVELBINE [Concomitant]
     Dosage: 12 WEEKLY CYCLES
     Dates: start: 20030101
  3. PACLITAXEL [Concomitant]
     Dosage: 12 CYCLES
     Dates: start: 20031201, end: 20040201
  4. LETROZOLE [Concomitant]
     Dates: start: 20040201
  5. CAPECITABINE [Suspect]
     Route: 065
  6. ADRIAMYCIN [Concomitant]
     Dosage: 4 CYCLES
     Dates: start: 20030601, end: 20030801
  7. EXEMESTANE [Concomitant]
     Dates: start: 20070501
  8. TRASTUZUMAB [Suspect]
     Indication: BREAST CANCER
     Dosage: 12 WEEKLY CYCLES
     Route: 065
     Dates: start: 20030101
  9. CYCLOPHOSPHAMIDE [Concomitant]
     Dosage: 4 CYCLES
     Dates: start: 20030601, end: 20030801
  10. CYTARABINE [Concomitant]
     Route: 037
     Dates: start: 20070501

REACTIONS (7)
  - CONVULSION [None]
  - RASH [None]
  - ATAXIA [None]
  - METASTATIC NEOPLASM [None]
  - METASTASES TO CENTRAL NERVOUS SYSTEM [None]
  - HEADACHE [None]
  - GAIT DISTURBANCE [None]
